FAERS Safety Report 4687022-0 (Version None)
Quarter: 2005Q2

REPORT INFORMATION
  Report Type: 
  Country: None (occurrence: None)
  Receive Date: 20050608
  Receipt Date: 20050518
  Transmission Date: 20051028
  Serious: No
  Sender: FDA-Public Use
  Company Number: USA050598916

PATIENT
  Age: 45 Year
  Sex: Female

DRUGS (1)
  1. STRATTERA [Suspect]
     Dosage: 60 MG
     Dates: start: 20040701, end: 20050501

REACTIONS (1)
  - ASPARTATE AMINOTRANSFERASE INCREASED [None]
